FAERS Safety Report 20673309 (Version 1)
Quarter: 2022Q2

REPORT INFORMATION
  Report Type: Spontaneous
  Country: US (occurrence: None)
  Receive Date: 20220403
  Receipt Date: 20220403
  Transmission Date: 20220720
  Serious: Yes (Hospitalization)
  Sender: FDA-Public Use
  Company Number: None

PATIENT
  Age: 61 Year
  Sex: Male
  Weight: 90 kg

DRUGS (1)
  1. LITHIUM CARBONATE [Suspect]
     Active Substance: LITHIUM CARBONATE
     Indication: Schizoaffective disorder
     Dosage: FREQUENCY : AT BEDTIME;?
     Route: 048
     Dates: start: 20201221, end: 20220115

REACTIONS (7)
  - Toxicity to various agents [None]
  - Dysstasia [None]
  - Dyskinesia [None]
  - Blood creatinine increased [None]
  - Sedation [None]
  - Blood urea increased [None]
  - Drug level above therapeutic [None]

NARRATIVE: CASE EVENT DATE: 20220114
